FAERS Safety Report 7531472-1 (Version None)
Quarter: 2011Q2

REPORT INFORMATION
  Report Type: 
  Country: None (occurrence: None)
  Receive Date: 20110531
  Receipt Date: 20110525
  Transmission Date: 20111010
  Serious: Yes (Life-Threatening, Hospitalization, Other)
  Sender: FDA-Public Use
  Company Number: 201110612

PATIENT
  Age: 41 Year
  Sex: Female

DRUGS (1)
  1. LIORESAL [Suspect]
     Indication: MUSCLE SPASTICITY
     Dosage: 20 MCG, DAILY, INTRATHECAL
     Route: 037

REACTIONS (7)
  - NAUSEA [None]
  - VOMITING [None]
  - IATROGENIC INJURY [None]
  - SUBDURAL HAEMATOMA [None]
  - PROCEDURAL HEADACHE [None]
  - VITH NERVE PARALYSIS [None]
  - LOSS OF CONSCIOUSNESS [None]
